FAERS Safety Report 6334627-7 (Version None)
Quarter: 2009Q3

REPORT INFORMATION
  Report Type: 
  Country: None (occurrence: None)
  Receive Date: 20090831
  Receipt Date: 20090821
  Transmission Date: 20100115
  Serious: Yes (Death, Hospitalization, Other)
  Sender: FDA-Public Use
  Company Number: CA-AMGEN-QUU361193

PATIENT
  Sex: Male

DRUGS (6)
  1. ENBREL [Suspect]
     Indication: DRUG USE FOR UNKNOWN INDICATION
     Route: 058
  2. PRILOSEC [Suspect]
     Route: 048
  3. ATENOLOL [Concomitant]
     Route: 048
  4. LIPITOR [Concomitant]
  5. METHOTREXATE [Concomitant]
  6. SULINDAC [Concomitant]

REACTIONS (5)
  - BIOPSY PLEURA ABNORMAL [None]
  - CHEST X-RAY ABNORMAL [None]
  - LUNG ADENOCARCINOMA METASTATIC [None]
  - NON-SMALL CELL LUNG CANCER STAGE IIIB [None]
  - RESPIRATORY FAILURE [None]
